FAERS Safety Report 7950832-8 (Version None)
Quarter: 2011Q4

REPORT INFORMATION
  Report Type: 
  Country: None (occurrence: None)
  Receive Date: 20111201
  Receipt Date: 20111129
  Transmission Date: 20120403
  Serious: No
  Sender: FDA-Public Use
  Company Number: US-PFIZER INC-2011262473

PATIENT
  Age: 72 Year
  Sex: Female

DRUGS (1)
  1. IBUPROFEN (ADVIL) [Suspect]
     Dosage: UNK
     Dates: end: 19960101

REACTIONS (2)
  - ADVERSE DRUG REACTION [None]
  - NERVOUSNESS [None]
